FAERS Safety Report 18768357 (Version 1)
Quarter: 2021Q1

REPORT INFORMATION
  Report Type: Spontaneous
  Country: US (occurrence: US)
  Receive Date: 20210120
  Receipt Date: 20210120
  Transmission Date: 20210419
  Serious: No
  Sender: FDA-Public Use
  Company Number: None

PATIENT
  Age: 68 Year
  Sex: Male
  Weight: 73 kg

DRUGS (1)
  1. VANCOMYCIN (VANCOMYCIN HCL 1GM/VIL INJ) [Suspect]
     Active Substance: VANCOMYCIN HYDROCHLORIDE
     Indication: DEVICE RELATED INFECTION
     Route: 042
     Dates: start: 20200708, end: 20200712

REACTIONS (2)
  - Renal tubular necrosis [None]
  - Acute kidney injury [None]

NARRATIVE: CASE EVENT DATE: 20200712
